FAERS Safety Report 26107517 (Version 1)
Quarter: 2025Q4

REPORT INFORMATION
  Report Type: Report from Study
  Country: JP (occurrence: JP)
  Receive Date: 20251201
  Receipt Date: 20251201
  Transmission Date: 20260118
  Serious: Yes (Other)
  Sender: ROCHE
  Company Number: JP-ROCHE-10000447606

PATIENT

DRUGS (4)
  1. BEVACIZUMAB [Suspect]
     Active Substance: BEVACIZUMAB
     Indication: Hepatocellular carcinoma
     Route: 042
  2. ATEZOLIZUMAB [Suspect]
     Active Substance: ATEZOLIZUMAB
     Indication: Hepatocellular carcinoma
     Route: 042
  3. DURVALUMAB [Suspect]
     Active Substance: DURVALUMAB
     Indication: Hepatocellular carcinoma
     Route: 065
  4. TREMELIMUMAB [Suspect]
     Active Substance: TREMELIMUMAB
     Indication: Hepatocellular carcinoma
     Route: 065

REACTIONS (12)
  - Enterocolitis [Unknown]
  - Pyrexia [Unknown]
  - Liver injury [Unknown]
  - Hypopituitarism [Unknown]
  - Adrenal insufficiency [Unknown]
  - Myositis [Unknown]
  - Arthritis [Unknown]
  - Renal injury [Unknown]
  - Rash [Unknown]
  - Interstitial lung disease [Unknown]
  - Cytokine release syndrome [Unknown]
  - Gastritis [Unknown]
